FAERS Safety Report 4609029-1 (Version None)
Quarter: 2005Q1

REPORT INFORMATION
  Report Type: 
  Country: None (occurrence: None)
  Receive Date: 20050311
  Receipt Date: 20050307
  Transmission Date: 20050727
  Serious: Yes (Life-Threatening, Hospitalization, Other)
  Sender: FDA-Public Use
  Company Number: KII-2005-0015408

PATIENT
  Age: 38 Year
  Sex: Male

DRUGS (2)
  1. MORPHINE SULFATE [Suspect]
     Dosage: ORAL
     Route: 048
  2. SSRI() [Suspect]
     Dosage: ORAL
     Route: 048

REACTIONS (18)
  - ASPIRATION [None]
  - BLEPHAROSPASM [None]
  - BLOOD LACTIC ACID INCREASED [None]
  - BLOOD PHOSPHORUS INCREASED [None]
  - BODY TEMPERATURE INCREASED [None]
  - CARDIAC ARREST [None]
  - COMA [None]
  - CONVULSION [None]
  - ELECTROCARDIOGRAM QT PROLONGED [None]
  - HYPOTENSION [None]
  - HYPOTHERMIA [None]
  - LIVER FUNCTION TEST ABNORMAL [None]
  - MYDRIASIS [None]
  - PNEUMONIA [None]
  - PUPIL FIXED [None]
  - RHABDOMYOLYSIS [None]
  - SUBARACHNOID HAEMORRHAGE [None]
  - TROPONIN INCREASED [None]
